FAERS Safety Report 24961092 (Version 2)
Quarter: 2025Q2

REPORT INFORMATION
  Report Type: Spontaneous
  Country: FR (occurrence: FR)
  Receive Date: 20250212
  Receipt Date: 20250416
  Transmission Date: 20250716
  Serious: No
  Sender: TOLMAR
  Company Number: FR-RECORDATI-2025000019

PATIENT

DRUGS (1)
  1. ELIGARD [Suspect]
     Active Substance: LEUPROLIDE ACETATE
     Indication: Occupational exposure to product
     Route: 058
     Dates: start: 20250103

REACTIONS (3)
  - Occupational exposure to product [Unknown]
  - Intercepted product administration error [Unknown]
  - Device leakage [Unknown]

NARRATIVE: CASE EVENT DATE: 20250103
